FAERS Safety Report 6297892-0 (Version None)
Quarter: 2009Q3

REPORT INFORMATION
  Report Type: 
  Country: None (occurrence: None)
  Receive Date: 20090805
  Receipt Date: 20090804
  Transmission Date: 20100115
  Serious: Yes (Other)
  Sender: FDA-Public Use
  Company Number: US-PURDUE-USA-2009-0039382

PATIENT
  Sex: Female

DRUGS (3)
  1. RYZOLT [Suspect]
     Indication: NECK PAIN
     Dosage: 100 MG, DAILY
     Route: 048
     Dates: start: 20090721, end: 20090723
  2. RYZOLT [Suspect]
     Indication: MUSCULOSKELETAL PAIN
  3. AMBIEN [Concomitant]
     Indication: INSOMNIA
     Route: 048

REACTIONS (3)
  - DIZZINESS [None]
  - HALLUCINATION [None]
  - SLEEP TALKING [None]
